FAERS Safety Report 24556606 (Version 1)
Quarter: 2024Q4

REPORT INFORMATION
  Report Type: Spontaneous
  Country: US (occurrence: None)
  Receive Date: 20241027
  Receipt Date: 20241027
  Transmission Date: 20250115
  Serious: Yes (Other)
  Sender: Public
  Company Number: None

PATIENT
  Age: 77 Year
  Sex: Female
  Weight: 74.25 kg

DRUGS (1)
  1. PROLIA [Suspect]
     Active Substance: DENOSUMAB
     Indication: Bone density decreased

REACTIONS (5)
  - Bronchitis [None]
  - Pneumonia [None]
  - Fatigue [None]
  - Bone pain [None]
  - Joint stiffness [None]

NARRATIVE: CASE EVENT DATE: 20241004
